FAERS Safety Report 19764010 (Version 1)
Quarter: 2021Q3

REPORT INFORMATION
  Report Type: Spontaneous
  Country: US (occurrence: US)
  Receive Date: 20210830
  Receipt Date: 20210830
  Transmission Date: 20211014
  Serious: Yes (Death, Hospitalization, Other)
  Sender: FDA-Public Use
  Company Number: US-BRACCO-2021US03648

PATIENT
  Age: 98 Year
  Sex: Female

DRUGS (4)
  1. ELIQUIS [Concomitant]
     Active Substance: APIXABAN
     Dosage: UNK
     Dates: end: 20210818
  2. LUMASON [Suspect]
     Active Substance: SULFUR HEXAFLUORIDE
     Indication: ECHOCARDIOGRAM
     Dosage: 1 CC RECONSTITUTED PER PI, SINGLE
     Dates: start: 20210820, end: 20210820
  3. LUMASON [Suspect]
     Active Substance: SULFUR HEXAFLUORIDE
     Indication: ECHOCARDIOGRAM
     Dosage: 1 CC RECONSTITUTED PER PI, SINGLE
     Dates: start: 20210820, end: 20210820
  4. LUMASON [Suspect]
     Active Substance: SULFUR HEXAFLUORIDE
     Indication: ECHOCARDIOGRAM
     Dosage: 1 CC RECONSTITUTED PER PI, SINGLE
     Dates: start: 20210820, end: 20210820

REACTIONS (2)
  - Pulmonary embolism [Unknown]
  - Pneumonia aspiration [Unknown]

NARRATIVE: CASE EVENT DATE: 20210820
